FAERS Safety Report 25571449 (Version 3)
Quarter: 2025Q3

REPORT INFORMATION
  Report Type: Report from Study
  Country: US (occurrence: US)
  Receive Date: 20250717
  Receipt Date: 20250915
  Transmission Date: 20251020
  Serious: Yes (Life-Threatening, Other)
  Sender: NOVARTIS
  Company Number: US-002147023-NVSC2025US113088

PATIENT
  Sex: Female

DRUGS (1)
  1. KESIMPTA [Suspect]
     Active Substance: OFATUMUMAB
     Indication: Product used for unknown indication
     Route: 065

REACTIONS (11)
  - Feeling abnormal [Unknown]
  - Myocardial infarction [Unknown]
  - Chest pain [Unknown]
  - Presyncope [Unknown]
  - Chest discomfort [Unknown]
  - Vomiting [Unknown]
  - Neck pain [Unknown]
  - Tension headache [Unknown]
  - Pain in extremity [Unknown]
  - Ill-defined disorder [Unknown]
  - Drug ineffective [Unknown]
